FAERS Safety Report 25336573 (Version 2)
Quarter: 2025Q2

REPORT INFORMATION
  Report Type: Spontaneous
  Country: US (occurrence: US)
  Receive Date: 20250520
  Receipt Date: 20250602
  Transmission Date: 20250716
  Serious: No
  Sender: LEO PHARM
  Company Number: US-LEO Pharma-379695

PATIENT
  Age: 62 Year
  Sex: Female

DRUGS (2)
  1. ADBRY [Suspect]
     Active Substance: TRALOKINUMAB-LDRM
     Indication: Dermatitis atopic
     Dosage: TREATMENT IS ONGOING
     Route: 058
  2. ADBRY [Suspect]
     Active Substance: TRALOKINUMAB-LDRM
     Indication: Dermatitis atopic

REACTIONS (2)
  - Weight fluctuation [Unknown]
  - Fatigue [Unknown]
